FAERS Safety Report 25530789 (Version 1)
Quarter: 2025Q3

REPORT INFORMATION
  Report Type: Spontaneous
  Country: US (occurrence: US)
  Receive Date: 20250708
  Receipt Date: 20250708
  Transmission Date: 20251020
  Serious: No
  Sender: VERTEX
  Company Number: US-VERTEX PHARMACEUTICALS-2025-010852

PATIENT
  Sex: Male

DRUGS (3)
  1. JOURNAVX [Suspect]
     Active Substance: SUZETRIGINE
     Indication: Headache
     Route: 048
     Dates: start: 202506, end: 202506
  2. JOURNAVX [Suspect]
     Active Substance: SUZETRIGINE
     Indication: Neck pain
  3. JOURNAVX [Suspect]
     Active Substance: SUZETRIGINE
     Indication: Back pain

REACTIONS (2)
  - Tremor [Not Recovered/Not Resolved]
  - Off label use [Unknown]

NARRATIVE: CASE EVENT DATE: 20250601
